FAERS Safety Report 10279607 (Version 1)
Quarter: 2014Q3

REPORT INFORMATION
  Report Type: Spontaneous
  Country: CH (occurrence: None)
  Receive Date: 20140702
  Receipt Date: 20140702
  Transmission Date: 20150326
  Serious: Yes (Other)
  Sender: FDA-Public Use
  Company Number: 20140387

PATIENT
  Age: 26 Year
  Sex: Female

DRUGS (1)
  1. FERINJECT [Suspect]
     Active Substance: FERRIC CARBOXYMALTOSE
     Indication: ANAEMIA
     Dosage: STERILE, NACL 0.9% INTRAVENOUS DRIP
     Route: 041

REACTIONS (3)
  - Infusion site discolouration [None]
  - Extravasation [None]
  - Infusion site swelling [None]
